FAERS Safety Report 11728440 (Version 1)
Quarter: 2015Q4

REPORT INFORMATION
  Report Type: Spontaneous
  Country: US (occurrence: US)
  Receive Date: 20151110
  Receipt Date: 20151110
  Transmission Date: 20160304
  Serious: No
  Sender: FDA-Public Use
  Company Number: US-ELI_LILLY_AND_COMPANY-US201109004792

PATIENT
  Age: 90 Year
  Weight: 59.86 kg

DRUGS (22)
  1. TIMOLOL. [Concomitant]
     Active Substance: TIMOLOL
     Dosage: 5 %, QD
     Route: 047
  2. METRONIDAZOLE. [Concomitant]
     Active Substance: METRONIDAZOLE
     Indication: ROSACEA
     Dosage: 75 %, QD
  3. DOCUSATE SODIUM. [Concomitant]
     Active Substance: DOCUSATE SODIUM
     Indication: CONSTIPATION
     Dosage: 250 MG, QD
  4. CALCIUM [Concomitant]
     Active Substance: CALCIUM
     Dosage: 333 MG, QD
  5. COUMADIN [Concomitant]
     Active Substance: WARFARIN SODIUM
     Dosage: 7 MG, QD
  6. AZOPT [Concomitant]
     Active Substance: BRINZOLAMIDE
     Dosage: UNK UNK, QD
     Route: 047
  7. DIGOXIN. [Concomitant]
     Active Substance: DIGOXIN
     Indication: ARRHYTHMIA SUPRAVENTRICULAR
     Dosage: 125 MG, QD
  8. VYTORIN [Concomitant]
     Active Substance: EZETIMIBE\SIMVASTATIN
     Dosage: UNK UNK, QD
  9. HYDROXYUREA. [Concomitant]
     Active Substance: HYDROXYUREA
     Dosage: 500 MG, BID
  10. FORTEO [Suspect]
     Active Substance: TERIPARATIDE
     Indication: OSTEOPOROSIS
     Dosage: 20 UG, QD
     Route: 058
     Dates: start: 20110630, end: 20110811
  11. VITAMIN B12 [Concomitant]
     Active Substance: CYANOCOBALAMIN
     Dosage: 1 MG, QD
  12. NEURONTIN [Concomitant]
     Active Substance: GABAPENTIN
     Dosage: 100 MG, TID
  13. VITAMIN B1 [Concomitant]
     Active Substance: THIAMINE HYDROCHLORIDE
     Dosage: 100 MG, QD
  14. ASPIRIN. [Concomitant]
     Active Substance: ASPIRIN
     Dosage: 81 MG, QD
  15. METOPROLOL [Concomitant]
     Active Substance: METOPROLOL
     Indication: HYPERTENSION
     Dosage: 25 MG, QD
  16. VITAMIN D [Concomitant]
     Active Substance: CHOLECALCIFEROL
     Dosage: 1000 IU, QD
  17. LEVOTHYROXINE. [Concomitant]
     Active Substance: LEVOTHYROXINE
     Dosage: 25 MG, QD
  18. MAGNESIUM [Concomitant]
     Active Substance: MAGNESIUM
     Dosage: 133 MG, QD
  19. MICARDIS [Concomitant]
     Active Substance: TELMISARTAN
     Indication: HYPERTENSION
     Dosage: 80 MG, QD
  20. TRAVATAN [Concomitant]
     Active Substance: TRAVOPROST
     Dosage: UNK, QD
  21. TIMOLOL. [Concomitant]
     Active Substance: TIMOLOL
     Dosage: 10 %, QD
     Route: 047
  22. ZINC [Concomitant]
     Active Substance: ZINC\ZINC CHLORIDE
     Dosage: 5 MG, QD

REACTIONS (2)
  - Atrial fibrillation [Recovered/Resolved]
  - Glaucoma [Unknown]

NARRATIVE: CASE EVENT DATE: 201108
